FAERS Safety Report 11427020 (Version 2)
Quarter: 2015Q3

REPORT INFORMATION
  Report Type: Spontaneous
  Country: US (occurrence: US)
  Receive Date: 20150827
  Receipt Date: 20150827
  Transmission Date: 20151125
  Serious: Yes (Hospitalization, Other)
  Sender: FDA-Public Use
  Company Number: US-GLAXOSMITHKLINE-US2015GSK122588

PATIENT
  Sex: Female

DRUGS (2)
  1. VENTOLIN HFA [Suspect]
     Active Substance: ALBUTEROL SULFATE
  2. FLOVENT HFA [Suspect]
     Active Substance: FLUTICASONE PROPIONATE

REACTIONS (2)
  - Asthma [Unknown]
  - Choking [Unknown]

NARRATIVE: CASE EVENT DATE: 2014
